FAERS Safety Report 9312675 (Version 1)
Quarter: 2013Q2

REPORT INFORMATION
  Report Type: Spontaneous
  Country: US (occurrence: US)
  Receive Date: 20130528
  Receipt Date: 20130528
  Transmission Date: 20140414
  Serious: Yes (Hospitalization, Other)
  Sender: FDA-Public Use
  Company Number: US-PURDUE-USA-2013-0102672

PATIENT
  Age: 51 Year
  Sex: Female

DRUGS (6)
  1. DILAUDID INJECTION [Suspect]
     Indication: PAIN
     Dosage: 16 MG, Q24H
     Route: 037
     Dates: start: 2002, end: 20130215
  2. PHENERGAN                          /00033001/ [Concomitant]
     Indication: NAUSEA
     Dosage: 25 MG, TID
     Route: 048
  3. TRAZODONE [Concomitant]
     Indication: SLEEP DISORDER
     Dosage: 100 MG, HS
     Route: 048
  4. SYNTHROID [Concomitant]
     Indication: HYPOTHYROIDISM
     Dosage: 100 MG, DAILY
     Route: 048
  5. CLONAZEPAM [Concomitant]
     Indication: ANXIETY
     Dosage: 1 MG, TID
     Route: 048
  6. CELEXA                             /00582602/ [Concomitant]
     Indication: DEPRESSION
     Dosage: 100 MG, DAILY
     Route: 048

REACTIONS (7)
  - Catheter site necrosis [Unknown]
  - Infection [Not Recovered/Not Resolved]
  - Device leakage [Unknown]
  - Device damage [Unknown]
  - Unevaluable event [Unknown]
  - Headache [Unknown]
  - Pain [Unknown]
